FAERS Safety Report 9469409 (Version 2)
Quarter: 2013Q3

REPORT INFORMATION
  Report Type: Spontaneous
  Country: IT (occurrence: IT)
  Receive Date: 20130822
  Receipt Date: 20130912
  Transmission Date: 20140515
  Serious: Yes (Hospitalization)
  Sender: FDA-Public Use
  Company Number: IT-ABBOTT-13X-083-1135466-00

PATIENT
  Age: 78 Year
  Sex: Male

DRUGS (11)
  1. DEPAKINE CHRONO [Suspect]
     Indication: ACCIDENTAL EXPOSURE TO PRODUCT
     Dosage: 300 MILLIGRAM(S) ;TOTAL, EXTENDED RELEASE
     Route: 048
     Dates: start: 20130729, end: 20130729
  2. SEROQUEL [Suspect]
     Indication: ACCIDENTAL EXPOSURE TO PRODUCT
     Dosage: 300 MILLIGRAM(S) ;TOTAL
     Route: 048
     Dates: start: 20130729, end: 20130729
  3. CLOPIXOL [Suspect]
     Indication: ACCIDENTAL EXPOSURE TO PRODUCT
     Dosage: 10 DROP(S) ;TOTAL
     Route: 048
     Dates: start: 20130729, end: 20130729
  4. FLUCONAZOLE [Concomitant]
     Indication: PRODUCT USED FOR UNKNOWN INDICATION
  5. FOLINA [Concomitant]
     Indication: PRODUCT USED FOR UNKNOWN INDICATION
  6. PANTOPRAZOLE SODIUM [Concomitant]
     Indication: PRODUCT USED FOR UNKNOWN INDICATION
  7. DIBASE [Concomitant]
     Indication: PRODUCT USED FOR UNKNOWN INDICATION
  8. DOBETIN [Concomitant]
     Indication: PRODUCT USED FOR UNKNOWN INDICATION
  9. LEVODOPA-CARBIDOPA [Concomitant]
     Indication: PRODUCT USED FOR UNKNOWN INDICATION
  10. COMTAN [Concomitant]
     Indication: PRODUCT USED FOR UNKNOWN INDICATION
  11. MIRAPEXIN [Concomitant]
     Indication: PRODUCT USED FOR UNKNOWN INDICATION

REACTIONS (3)
  - Electrocardiogram QT prolonged [Recovering/Resolving]
  - Accidental exposure to product [Recovering/Resolving]
  - Sopor [Recovering/Resolving]
